FAERS Safety Report 7781622-7 (Version None)
Quarter: 2011Q3

REPORT INFORMATION
  Report Type: 
  Country: None (occurrence: None)
  Receive Date: 20110927
  Receipt Date: 20110921
  Transmission Date: 20111222
  Serious: Yes (Other)
  Sender: FDA-Public Use
  Company Number: CHPA2011US12972

PATIENT
  Age: 57 Year
  Sex: Male

DRUGS (2)
  1. VOLTAREN [Suspect]
     Indication: ARTHRALGIA
     Dosage: UNK, UNK
     Route: 061
  2. VOLTAREN [Suspect]
     Dosage: UNK, ONCE
     Route: 061
     Dates: start: 20110829, end: 20110829

REACTIONS (8)
  - APPLICATION SITE SCAB [None]
  - OFF LABEL USE [None]
  - APPLICATION SITE VESICLES [None]
  - WRONG TECHNIQUE IN DRUG USAGE PROCESS [None]
  - APPLICATION SITE PRURITUS [None]
  - APPLICATION SITE BURN [None]
  - DRUG ADMINISTERED AT INAPPROPRIATE SITE [None]
  - APPLICATION SITE ERYTHEMA [None]
